FAERS Safety Report 9474133 (Version 2)
Quarter: 2013Q3

REPORT INFORMATION
  Report Type: Spontaneous
  Country: US (occurrence: US)
  Receive Date: 20130823
  Receipt Date: 20130829
  Transmission Date: 20140515
  Serious: Yes (Other)
  Sender: FDA-Public Use
  Company Number: US-TEVA-427655USA

PATIENT
  Sex: Female
  Weight: 113.5 kg

DRUGS (4)
  1. VENLAFAXINE [Suspect]
     Indication: PANIC ATTACK
     Dosage: 300 MILLIGRAM DAILY;
     Route: 048
     Dates: start: 2007, end: 2007
  2. EFFEXOR XR [Suspect]
     Indication: PANIC ATTACK
     Dosage: 300 MILLIGRAM DAILY;
     Route: 048
  3. UNSPECIFIED HIGH BLOOD PRESSURE MEDICATIONS [Concomitant]
     Indication: HYPERTENSION
  4. CLONAZEPAM [Concomitant]
     Dosage: 2 MILLIGRAM DAILY;

REACTIONS (7)
  - Lyme disease [Unknown]
  - Blood pressure increased [Unknown]
  - Dizziness [Unknown]
  - Nausea [Unknown]
  - Headache [Unknown]
  - Malaise [Unknown]
  - Drug ineffective [Unknown]
